FAERS Safety Report 10194749 (Version 1)
Quarter: 2014Q2

REPORT INFORMATION
  Report Type: Spontaneous
  Country: AT (occurrence: MD)
  Receive Date: 20140526
  Receipt Date: 20140526
  Transmission Date: 20141212
  Serious: Yes (Hospitalization, Other)
  Sender: FDA-Public Use
  Company Number: MD-GE HEALTHCARE MEDICAL DIAGNOSTICS-OMPQ-PR-1405S-0495

PATIENT
  Age: 76 Year
  Sex: Female
  Weight: 80 kg

DRUGS (5)
  1. OMNIPAQUE [Suspect]
     Indication: HEPATIC CANCER
     Route: 050
     Dates: start: 20140402, end: 20140402
  2. OMNIPAQUE [Suspect]
     Indication: DIAGNOSTIC PROCEDURE
  3. SODIUM CHLORIDE [Suspect]
     Indication: HEPATIC CANCER
     Route: 050
     Dates: start: 20140402, end: 20140402
  4. SODIUM CHLORIDE [Suspect]
     Indication: DIAGNOSTIC PROCEDURE
  5. DEXAMETHASONE [Concomitant]
     Indication: IMMUNE TOLERANCE INDUCTION
     Route: 050
     Dates: start: 20140402, end: 20140402

REACTIONS (10)
  - Musculoskeletal chest pain [Recovered/Resolved]
  - Vomiting [Recovered/Resolved]
  - Nausea [Recovered/Resolved]
  - Dizziness [Recovered/Resolved]
  - Asthenia [Recovered/Resolved]
  - Loss of consciousness [Recovered/Resolved]
  - Headache [Recovered/Resolved]
  - Pruritus [Recovered/Resolved]
  - Urticaria [Recovered/Resolved]
  - Hypotension [Recovered/Resolved]
